FAERS Safety Report 7145425-9 (Version None)
Quarter: 2010Q4

REPORT INFORMATION
  Report Type: 
  Country: None (occurrence: None)
  Receive Date: 20101208
  Receipt Date: 20101208
  Transmission Date: 20110411
  Serious: Yes (Death)
  Sender: FDA-Public Use
  Company Number: None

PATIENT
  Age: 4 Month
  Sex: Male

DRUGS (1)
  1. HURRICAINE [Suspect]
     Dosage: GEL

REACTIONS (5)
  - DROOLING [None]
  - MEDICATION ERROR [None]
  - METHAEMOGLOBINAEMIA [None]
  - OBSTRUCTIVE AIRWAYS DISORDER [None]
  - SKIN DISCOLOURATION [None]
